FAERS Safety Report 6223530-9 (Version None)
Quarter: 2009Q2

REPORT INFORMATION
  Report Type: 
  Country: None (occurrence: None)
  Receive Date: 20090610
  Receipt Date: 20090601
  Transmission Date: 20091009
  Serious: Yes (Other)
  Sender: FDA-Public Use
  Company Number: CIP09000473

PATIENT
  Age: 44 Year
  Sex: Female

DRUGS (14)
  1. ACTONEL [Suspect]
     Dosage: ORAL
     Route: 048
     Dates: start: 20090201, end: 20090201
  2. ADVAIR (FLUGICASONE PROPIONATE, SALMETEROL XINAFOATE) [Concomitant]
  3. SYNTHROID [Concomitant]
  4. DEMEROL [Concomitant]
  5. FLEXERIL /00428402/ (CYCLOBENZAPRINE HYDROCHLORIDE) [Concomitant]
  6. PHENERGAN /00033001/ (PROMETHAZINE) [Concomitant]
  7. VISTARIL /00058402/ (HYDROXYZINE HYDROCHLORIDE) [Concomitant]
  8. PROZAC [Concomitant]
  9. BACLOFEN [Concomitant]
  10. NEURONTIN [Concomitant]
  11. CYMBALTA [Concomitant]
  12. CALCIUM (CALCIUM) [Concomitant]
  13. ERGOCALCIFEROL [Concomitant]
  14. DOXYCYCLINE [Concomitant]

REACTIONS (12)
  - ABDOMINAL PAIN UPPER [None]
  - ARTHRALGIA [None]
  - BACK PAIN [None]
  - CONDITION AGGRAVATED [None]
  - DYSURIA [None]
  - FIBROMYALGIA [None]
  - FLANK PAIN [None]
  - HYPOCALCAEMIA [None]
  - MUSCLE SPASMS [None]
  - MYALGIA [None]
  - NAUSEA [None]
  - PYREXIA [None]
